FAERS Safety Report 8620395-2 (Version None)
Quarter: 2012Q3

REPORT INFORMATION
  Report Type: 
  Country: None (occurrence: None)
  Receive Date: 20120824
  Receipt Date: 20120813
  Transmission Date: 20120928
  Serious: Yes (Life-Threatening, Hospitalization)
  Sender: FDA-Public Use
  Company Number: FR-GLAXOSMITHKLINE-B0698025A

PATIENT
  Sex: Female
  Weight: 60 kg

DRUGS (5)
  1. CANDESARTAN CILEXETIL AND HYDROCHLOROTHIAZIDE [Concomitant]
     Route: 065
     Dates: start: 20090926
  2. SOTALOL HCL [Concomitant]
     Route: 065
     Dates: start: 20050923
  3. EZETIMIBE [Concomitant]
     Route: 065
     Dates: start: 20080707
  4. GALVUS [Concomitant]
     Indication: TYPE 2 DIABETES MELLITUS
     Dosage: 50MG TWICE PER DAY
     Dates: start: 20100628
  5. AVANDAMET [Suspect]
     Indication: TYPE 2 DIABETES MELLITUS
     Route: 048
     Dates: start: 20060424, end: 20101007

REACTIONS (3)
  - CHEST DISCOMFORT [None]
  - DYSPNOEA EXERTIONAL [None]
  - CORONARY OSTIAL STENOSIS [None]
